FAERS Safety Report 21734293 (Version 1)
Quarter: 2022Q4

REPORT INFORMATION
  Report Type: Report from Study
  Country: US (occurrence: US)
  Receive Date: 20221215
  Receipt Date: 20221215
  Transmission Date: 20230112
  Serious: No
  Sender: FDA-Public Use
  Company Number: US-ABBVIE-4199994

PATIENT
  Sex: Male

DRUGS (1)
  1. HUMIRA [Suspect]
     Active Substance: ADALIMUMAB
     Indication: Ankylosing spondylitis
     Route: 058

REACTIONS (6)
  - Intervertebral disc protrusion [Not Recovered/Not Resolved]
  - Spinal fusion acquired [Unknown]
  - Lumbar radiculopathy [Unknown]
  - Clamping of blood vessel [Unknown]
  - Nervous system disorder [Unknown]
  - Electric shock sensation [Unknown]
